FAERS Safety Report 10697751 (Version 1)
Quarter: 2015Q1

REPORT INFORMATION
  Report Type: Spontaneous
  Country: US (occurrence: None)
  Receive Date: 20150107
  Receipt Date: 20150107
  Transmission Date: 20150721
  Serious: Yes (Hospitalization)
  Sender: FDA-Public Use
  Company Number: None

PATIENT
  Age: 71 Year
  Sex: Female
  Weight: 78.47 kg

DRUGS (19)
  1. LIDOCAINE CREAM [Concomitant]
  2. VALACYCLOVIR HCL [Concomitant]
     Active Substance: VALACYCLOVIR HYDROCHLORIDE
  3. MELETONIN [Concomitant]
  4. NYSTATIN. [Concomitant]
     Active Substance: NYSTATIN
  5. OXYBUTYNIN CHLORIDE. [Concomitant]
     Active Substance: OXYBUTYNIN CHLORIDE
  6. MULTIVITAMIN [Concomitant]
     Active Substance: VITAMINS
  7. BRENTUXIMAB VEDOTIN [Suspect]
     Active Substance: BRENTUXIMAB VEDOTIN
     Indication: DIFFUSE LARGE B-CELL LYMPHOMA
     Dosage: .9 MG/KG IV DAY 1
     Route: 042
     Dates: start: 20141024, end: 20141217
  8. METOPROLOL SUCCINATE. [Concomitant]
     Active Substance: METOPROLOL SUCCINATE
  9. LENALIDOMIDE [Suspect]
     Active Substance: LENALIDOMIDE
     Indication: DIFFUSE LARGE B-CELL LYMPHOMA
     Dosage: 15 MG PO DAYS 1-21
     Route: 048
     Dates: start: 20141024, end: 20141219
  10. DAPSONE. [Concomitant]
     Active Substance: DAPSONE
  11. ESCITALOPRAM OXALATE. [Concomitant]
     Active Substance: ESCITALOPRAM OXALATE
  12. CRANBERRY SUPPLEMENT [Concomitant]
  13. MAGIC MOUTH WASH [Concomitant]
     Active Substance: ALUMINUM HYDROXIDE\DIMETHICONE\DIPHENHYDRAMINE\HYDROXIDE ION\LIDOCAINE
  14. ZYRTEC [Concomitant]
     Active Substance: CETIRIZINE HYDROCHLORIDE
  15. CEFTRIAXONE. [Concomitant]
     Active Substance: CEFTRIAXONE
  16. FLONASE [Concomitant]
     Active Substance: FLUTICASONE PROPIONATE
  17. LEVETIRACETAM. [Concomitant]
     Active Substance: LEVETIRACETAM
  18. RISPERIDONE. [Concomitant]
     Active Substance: RISPERIDONE
  19. ASPIRIN. [Concomitant]
     Active Substance: ASPIRIN

REACTIONS (7)
  - Platelet count decreased [None]
  - Diffuse large B-cell lymphoma [None]
  - White blood cell count decreased [None]
  - Musculoskeletal pain [None]
  - Anaemia [None]
  - Malignant neoplasm progression [None]
  - Mass [None]

NARRATIVE: CASE EVENT DATE: 20141231
